FAERS Safety Report 20780939 (Version 4)
Quarter: 2022Q3

REPORT INFORMATION
  Report Type: Report from Study
  Country: US (occurrence: US)
  Receive Date: 20220504
  Receipt Date: 20220920
  Transmission Date: 20221026
  Serious: Yes (Hospitalization, Other)
  Sender: FDA-Public Use
  Company Number: US-BRISTOL-MYERS SQUIBB COMPANY-2022-025147

PATIENT
  Age: 78 Year
  Sex: Female
  Weight: 58.06 kg

DRUGS (4)
  1. POMALYST [Suspect]
     Active Substance: POMALIDOMIDE
     Indication: Plasma cell myeloma
     Dosage: FOR 21 DAYS
     Route: 048
     Dates: start: 202112
  2. POMALYST [Suspect]
     Active Substance: POMALIDOMIDE
     Dosage: DAILY 21 DAYS
     Route: 048
     Dates: start: 202112
  3. POMALYST [Suspect]
     Active Substance: POMALIDOMIDE
     Dosage: 21 DAYS ON, 7 DAYS OFF
     Route: 048
  4. ELIQUIS [Concomitant]
     Active Substance: APIXABAN

REACTIONS (3)
  - Gallbladder disorder [Unknown]
  - Hypotension [Unknown]
  - Post herpetic neuralgia [Unknown]
